FAERS Safety Report 8384057-1 (Version None)
Quarter: 2012Q2

REPORT INFORMATION
  Report Type: 
  Country: None (occurrence: None)
  Receive Date: 20120524
  Receipt Date: 20120521
  Transmission Date: 20120825
  Serious: Yes (Hospitalization)
  Sender: FDA-Public Use
  Company Number: PHHO2012IT007190

PATIENT
  Sex: Male
  Weight: 80 kg

DRUGS (11)
  1. OPIUM/NALOXONE TAB [Concomitant]
     Indication: PAIN
     Dosage: 5 MG, BID
     Route: 048
     Dates: start: 20120130, end: 20120504
  2. BLINDED LBH589 [Suspect]
     Indication: MULTIPLE MYELOMA
     Dosage: CODE NOT BROKEN
     Route: 048
     Dates: start: 20120423, end: 20120504
  3. BLINDED NO TREATMENT RECEIVED [Suspect]
     Indication: MULTIPLE MYELOMA
     Dosage: CODE NOT BROKEN
     Route: 048
     Dates: start: 20120423, end: 20120504
  4. ACYCLOVIR [Concomitant]
     Indication: ANTIVIRAL PROPHYLAXIS
     Dosage: 400 MG, BID
     Route: 048
     Dates: start: 20120102, end: 20120504
  5. BORTEZOMIB [Suspect]
     Indication: MULTIPLE MYELOMA
     Dosage: 1 MG/M2, UNK
     Dates: start: 20120423, end: 20120503
  6. EPREX [Concomitant]
     Indication: ANAEMIA
     Dosage: 4000, UI, WEEKLY
     Route: 057
     Dates: start: 20120105, end: 20120504
  7. PLACEBO [Suspect]
     Indication: MULTIPLE MYELOMA
     Dosage: CODE NOT BROKEN
     Route: 048
     Dates: start: 20120423, end: 20120504
  8. DEXAMETHASONE [Suspect]
     Indication: MULTIPLE MYELOMA
     Dosage: CODE NOT BROKEN
     Route: 048
     Dates: start: 20120423, end: 20120504
  9. LANSOPRAZOLE [Concomitant]
     Dosage: 30 MG, QD
     Route: 048
     Dates: start: 20120102, end: 20120504
  10. COMPARATOR DEXAMETHASONE [Suspect]
     Indication: MULTIPLE MYELOMA
     Dosage: 20 MG, UNK
     Dates: start: 20120423, end: 20120504
  11. VELCADE [Suspect]
     Indication: MULTIPLE MYELOMA
     Dosage: CODE NOT BROKEN
     Route: 048
     Dates: start: 20120423, end: 20120504

REACTIONS (1)
  - PNEUMONIA [None]
